FAERS Safety Report 17963170 (Version 1)
Quarter: 2020Q2

REPORT INFORMATION
  Report Type: Other
  Country: PT (occurrence: PT)
  Receive Date: 20200630
  Receipt Date: 20200630
  Transmission Date: 20200714
  Serious: Yes (Life-Threatening, Other)
  Sender: FDA-Public Use
  Company Number: PT-MACLEODS PHARMACEUTICALS US LTD-MAC2020026901

PATIENT

DRUGS (38)
  1. VENLAFAXINE [Suspect]
     Active Substance: VENLAFAXINE HYDROCHLORIDE
     Indication: HEPATITIS C
     Dosage: 1 ML OF TRIAMCINOLONE 40 MG INJECTED
     Route: 065
  2. LOPINAVIR/RITONAVIR [Suspect]
     Active Substance: LOPINAVIR\RITONAVIR
     Indication: CHRONIC HEPATITIS C
     Dosage: UNK
     Route: 065
  3. METHADONE HYDROCHLORIDE. [Suspect]
     Active Substance: METHADONE HYDROCHLORIDE
     Indication: HEPATITIS C
     Dosage: 1 ML OF TRIAMCINOLONE 40 MG INJECTED
     Route: 065
  4. ALCOHOL. [Suspect]
     Active Substance: ALCOHOL
     Indication: PRODUCT USED FOR UNKNOWN INDICATION
     Dosage: UNKNOWN DOSE
     Route: 065
  5. LAMIVUDINE. [Suspect]
     Active Substance: LAMIVUDINE
     Indication: HEPATITIS C
     Dosage: UNK
     Route: 065
  6. LAMIVUDINE. [Suspect]
     Active Substance: LAMIVUDINE
     Indication: HIV INFECTION CDC CATEGORY C
     Dosage: 1 ML OF TRIAMCINOLONE 40 MG INJECTED
     Route: 065
  7. EMTRICITABINE/TENOFOVIR DISOPROXIL [Suspect]
     Active Substance: EMTRICITABINE\TENOFOVIR DISOPROXIL
     Indication: CHRONIC HEPATITIS C
     Dosage: UNK
     Route: 065
  8. LOPINAVIR/RITONAVIR [Suspect]
     Active Substance: LOPINAVIR\RITONAVIR
     Indication: HEPATITIS C
     Dosage: 1 ML OF TRIAMCINOLONE 40 MG INJECTED
  9. METHADONE HYDROCHLORIDE. [Suspect]
     Active Substance: METHADONE HYDROCHLORIDE
     Indication: HIV INFECTION
     Dosage: UNK
     Route: 065
  10. MIRTAZAPINE. [Suspect]
     Active Substance: MIRTAZAPINE
     Indication: CHRONIC HEPATITIS C
     Dosage: UNK
     Route: 065
  11. OLANZAPINE. [Suspect]
     Active Substance: OLANZAPINE
     Indication: HEPATITIS C
     Dosage: 1 ML OF TRIAMCINOLONE 40 MG INJECTED
     Route: 065
  12. OLANZAPINE. [Suspect]
     Active Substance: OLANZAPINE
     Indication: HIV INFECTION
     Dosage: UNK
     Route: 065
  13. QUETIAPINE. [Suspect]
     Active Substance: QUETIAPINE
     Indication: HEPATITIS C
     Dosage: 1 ML OF TRIAMCINOLONE 40 MG INJECTED
     Route: 065
  14. LAMIVUDINE. [Suspect]
     Active Substance: LAMIVUDINE
     Indication: CHRONIC HEPATITIS C
     Route: 065
  15. ZIDOVUDINE. [Suspect]
     Active Substance: ZIDOVUDINE
     Indication: CHRONIC HEPATITIS C
     Dosage: UNK
     Route: 065
  16. TIAPRIDE [Suspect]
     Active Substance: TIAPRIDE
     Indication: CHRONIC HEPATITIS C
     Dosage: 1 ML OF TRIAMCINOLONE 40 MG INJECTED
     Route: 065
  17. OLANZAPINE. [Suspect]
     Active Substance: OLANZAPINE
     Indication: CHRONIC HEPATITIS C
     Dosage: UNK
     Route: 065
  18. QUETIAPINE. [Suspect]
     Active Substance: QUETIAPINE
     Indication: HIV INFECTION
     Dosage: UNK
     Route: 065
  19. VENLAFAXINE [Suspect]
     Active Substance: VENLAFAXINE HYDROCHLORIDE
     Indication: HIV INFECTION
     Dosage: UNK
     Route: 065
  20. SERTRALINE [Suspect]
     Active Substance: SERTRALINE HYDROCHLORIDE
     Indication: CHRONIC HEPATITIS C
     Dosage: 1 ML OF TRIAMCINOLONE 40 MG INJECTED
     Route: 065
  21. METHADONE HYDROCHLORIDE. [Suspect]
     Active Substance: METHADONE HYDROCHLORIDE
     Indication: CHRONIC HEPATITIS C
     Dosage: UNK
     Route: 065
  22. TRAZODONE [Suspect]
     Active Substance: TRAZODONE HYDROCHLORIDE
     Indication: HEPATITIS C
     Dosage: UNK, 1 ML OF TRIAMCINOLONE 40 MG INJECTED
     Route: 065
  23. VENLAFAXINE [Suspect]
     Active Substance: VENLAFAXINE HYDROCHLORIDE
     Indication: CHRONIC HEPATITIS C
     Dosage: UNK
     Route: 065
  24. EMTRICITABINE/TENOFOVIR DISOPROXIL [Suspect]
     Active Substance: EMTRICITABINE\TENOFOVIR DISOPROXIL
     Indication: HEPATITIS C
     Dosage: 1 ML OF TRIAMCINOLONE 40 MG INJECTED
     Route: 065
  25. EMTRICITABINE/TENOFOVIR DISOPROXIL [Suspect]
     Active Substance: EMTRICITABINE\TENOFOVIR DISOPROXIL
     Indication: HIV INFECTION
     Dosage: UNK
     Route: 065
  26. LOPINAVIR/RITONAVIR [Suspect]
     Active Substance: LOPINAVIR\RITONAVIR
     Indication: HIV INFECTION CDC CATEGORY C
     Dosage: UNK
     Route: 065
  27. ZIDOVUDINE. [Suspect]
     Active Substance: ZIDOVUDINE
     Indication: HEPATITIS C
     Dosage: UNK, ML OF TRIAMCINOLONE 40 MG INJECTED
     Route: 065
  28. SERTRALINE [Suspect]
     Active Substance: SERTRALINE HYDROCHLORIDE
     Indication: HEPATITIS C
     Dosage: UNK
     Route: 065
  29. QUETIAPINE. [Suspect]
     Active Substance: QUETIAPINE
     Indication: CHRONIC HEPATITIS C
     Dosage: UNK
     Route: 065
  30. TRIAMCINOLONE [Suspect]
     Active Substance: TRIAMCINOLONE
     Indication: PRODUCT USED FOR UNKNOWN INDICATION
     Dosage: UNK, 1 ML OF TRIAMCINOLONE 40 MG INJECTED
     Route: 065
  31. SERTRALINE [Suspect]
     Active Substance: SERTRALINE HYDROCHLORIDE
     Indication: HIV INFECTION
     Dosage: UNK
     Route: 065
  32. TIAPRIDE [Suspect]
     Active Substance: TIAPRIDE
     Indication: HIV INFECTION
     Dosage: UNK
     Route: 065
  33. TIAPRIDE [Suspect]
     Active Substance: TIAPRIDE
     Indication: HEPATITIS C
     Dosage: 1 ML OF TRIAMCINOLONE 40 MG INJECTED
     Route: 065
  34. TRAZODONE [Suspect]
     Active Substance: TRAZODONE HYDROCHLORIDE
     Indication: HIV INFECTION
     Dosage: UNK
     Route: 065
  35. TRAZODONE [Suspect]
     Active Substance: TRAZODONE HYDROCHLORIDE
     Indication: CHRONIC HEPATITIS C
     Dosage: UNK
     Route: 065
  36. MIRTAZAPINE. [Suspect]
     Active Substance: MIRTAZAPINE
     Indication: HIV INFECTION
     Dosage: UNK
     Route: 065
  37. ZIDOVUDINE. [Suspect]
     Active Substance: ZIDOVUDINE
     Indication: HIV INFECTION
     Dosage: UNK
     Route: 065
  38. MIRTAZAPINE. [Suspect]
     Active Substance: MIRTAZAPINE
     Indication: HEPATITIS C
     Dosage: 1 ML OF TRIAMCINOLONE 40 MG INJECTED
     Route: 065

REACTIONS (4)
  - Drug-induced liver injury [Recovered/Resolved]
  - Off label use [Unknown]
  - Hepatic fibrosis [Unknown]
  - Overdose [Recovered/Resolved]
